FAERS Safety Report 9540103 (Version 1)
Quarter: 2013Q3

REPORT INFORMATION
  Report Type: Spontaneous
  Country: NL (occurrence: NL)
  Receive Date: 20130920
  Receipt Date: 20130920
  Transmission Date: 20140515
  Serious: Yes (Death, Other)
  Sender: FDA-Public Use
  Company Number: NL-BAXTER-2013BAX036520

PATIENT
  Age: 58 Year
  Sex: Female

DRUGS (11)
  1. CIPROFLOXACIN REDIBAG 2 MG/ML, OPLOSSING VOOR INFUSIE [Suspect]
     Indication: RETROPERITONEAL ABSCESS
     Route: 065
  2. METRONIDAZOL 5 MG/ML [Suspect]
     Indication: RETROPERITONEAL ABSCESS
     Route: 065
  3. CEFUROXIME [Suspect]
     Indication: RETROPERITONEAL ABSCESS
     Route: 065
  4. PIPERACILLIN / TAZOBACTAM [Suspect]
     Indication: RETROPERITONEAL ABSCESS
     Route: 065
  5. AMOXICILLIN [Suspect]
     Indication: RETROPERITONEAL ABSCESS
     Route: 065
  6. VANCOMYCIN [Suspect]
     Indication: RETROPERITONEAL ABSCESS
     Route: 065
  7. PREDNISONE [Suspect]
     Indication: RETROPERITONEAL ABSCESS
     Route: 065
  8. CLEMASTINE [Suspect]
     Indication: RETROPERITONEAL ABSCESS
     Route: 065
  9. LINEZOLID [Suspect]
     Indication: RETROPERITONEAL ABSCESS
     Route: 065
  10. COTRIMOXAZOLE [Suspect]
     Indication: RETROPERITONEAL ABSCESS
     Route: 065
  11. HEPARIN [Suspect]
     Indication: CONTINUOUS HAEMODIAFILTRATION
     Route: 065

REACTIONS (3)
  - Cerebral haemorrhage [Fatal]
  - Drug reaction with eosinophilia and systemic symptoms [Not Recovered/Not Resolved]
  - Renal failure [Not Recovered/Not Resolved]
